FAERS Safety Report 18805660 (Version 1)
Quarter: 2021Q1

REPORT INFORMATION
  Report Type: Spontaneous
  Country: AU (occurrence: AU)
  Receive Date: 20210128
  Receipt Date: 20210128
  Transmission Date: 20210419
  Serious: Yes (Other)
  Sender: FDA-Public Use
  Company Number: AU-ASTRAZENECA-2021A018720

PATIENT
  Age: 62 Year
  Sex: Male

DRUGS (11)
  1. JANUMET [Concomitant]
     Active Substance: METFORMIN HYDROCHLORIDE\SITAGLIPTIN PHOSPHATE
  2. ONDANSETRON [Concomitant]
     Active Substance: ONDANSETRON
  3. VALACYCLOVIR [Concomitant]
     Active Substance: VALACYCLOVIR HYDROCHLORIDE
  4. PARACETAMOL [Concomitant]
     Active Substance: ACETAMINOPHEN
  5. OXYCODONE [Concomitant]
     Active Substance: OXYCODONE
  6. FENTANYL. [Concomitant]
     Active Substance: FENTANYL
  7. FILGRASTIM [Concomitant]
     Active Substance: FILGRASTIM
  8. ESOMEPRAZOLE. [Suspect]
     Active Substance: ESOMEPRAZOLE MAGNESIUM
     Route: 048
  9. MIDAZOLAM. [Concomitant]
     Active Substance: MIDAZOLAM
  10. VENETOCLAX. [Concomitant]
     Active Substance: VENETOCLAX
  11. AZACITIDINE. [Suspect]
     Active Substance: AZACITIDINE
     Route: 065

REACTIONS (1)
  - Febrile neutropenia [Recovered/Resolved]

NARRATIVE: CASE EVENT DATE: 20191108
